FAERS Safety Report 9610699 (Version 2)
Quarter: 2013Q4

REPORT INFORMATION
  Report Type: Spontaneous
  Country: JP (occurrence: JP)
  Receive Date: 20131009
  Receipt Date: 20131017
  Transmission Date: 20140711
  Serious: Yes (Hospitalization, Other)
  Sender: FDA-Public Use
  Company Number: JP-B.I. PHARMACEUTICALS,INC./RIDGEFIELD-2013-BI-31524GD

PATIENT
  Age: 54 Year
  Sex: Male

DRUGS (6)
  1. TELMISARTAN [Suspect]
     Indication: HYPERTENSION
     Route: 048
  2. TELMISARTAN [Suspect]
     Indication: CARDIAC HYPERTROPHY
  3. CARVEDILOL [Suspect]
     Indication: HYPERTENSION
     Route: 048
  4. CARVEDILOL [Suspect]
     Indication: CARDIAC HYPERTROPHY
  5. SPIRONOLACTONE [Suspect]
     Indication: HYPERTENSION
     Route: 048
  6. SPIRONOLACTONE [Suspect]
     Indication: CARDIAC HYPERTROPHY

REACTIONS (2)
  - Cardiac failure [Unknown]
  - Cardiac amyloidosis [Unknown]
